FAERS Safety Report 8645999 (Version 9)
Quarter: 2016Q3

REPORT INFORMATION
  Report Type: Spontaneous
  Country: US (occurrence: US)
  Receive Date: 20120702
  Receipt Date: 20160802
  Transmission Date: 20161109
  Serious: Yes (Hospitalization, Disabling, Other)
  Sender: FDA-Public Use
  Company Number: US-009507513-1206USA04951

PATIENT
  Sex: Female
  Weight: 84.81 kg

DRUGS (19)
  1. FOSAMAX [Suspect]
     Active Substance: ALENDRONATE SODIUM
     Indication: OSTEOPENIA
  2. MAGNESIUM (UNSPECIFIED) [Concomitant]
     Active Substance: MAGNESIUM
     Indication: OSTEOPOROSIS
     Dosage: 400 MG, QD
     Route: 065
  3. VITAMIN D [Concomitant]
     Active Substance: CHOLECALCIFEROL
     Indication: OSTEOPENIA
  4. FOSAMAX [Suspect]
     Active Substance: ALENDRONATE SODIUM
     Indication: OSTEOPOROSIS
     Dosage: 70 MG, QW
     Route: 048
     Dates: start: 200210, end: 201004
  5. CALCIUM (UNSPECIFIED) (+) VITAMIN D (UNSPECIFIED) [Concomitant]
     Active Substance: CALCIUM CARBONATE\VITAMIN D
     Indication: OSTEOPOROSIS
     Dosage: UNK, BID
     Route: 065
  6. DITROPAN XL [Concomitant]
     Active Substance: OXYBUTYNIN CHLORIDE
     Indication: PRODUCT USED FOR UNKNOWN INDICATION
     Route: 065
  7. VITAMINS (UNSPECIFIED) [Concomitant]
     Active Substance: VITAMINS
     Indication: PRODUCT USED FOR UNKNOWN INDICATION
     Dosage: UNK
     Route: 065
     Dates: start: 19800101
  8. ALENDRONATE SODIUM. [Suspect]
     Active Substance: ALENDRONATE SODIUM
     Indication: OSTEOPENIA
  9. MIRAPEX [Concomitant]
     Active Substance: PRAMIPEXOLE DIHYDROCHLORIDE
     Indication: RESTLESS LEGS SYNDROME
     Route: 065
  10. CALCIUM (UNSPECIFIED) [Concomitant]
     Active Substance: CALCIUM
     Indication: OSTEOPOROSIS
     Dosage: 1500 MG, UNK
     Route: 065
  11. MAGNESIUM (UNSPECIFIED) [Concomitant]
     Active Substance: MAGNESIUM
     Indication: OSTEOPENIA
  12. BONIVA [Concomitant]
     Active Substance: IBANDRONATE SODIUM
     Indication: OSTEOPENIA
     Dosage: 150 MG, UNK
     Route: 065
     Dates: start: 200803, end: 200807
  13. ALENDRONATE SODIUM. [Suspect]
     Active Substance: ALENDRONATE SODIUM
     Indication: OSTEOPOROSIS
     Dosage: 70 MG, UNK
     Route: 065
     Dates: start: 20090421
  14. MIRAPEX [Concomitant]
     Active Substance: PRAMIPEXOLE DIHYDROCHLORIDE
     Indication: PERIODIC LIMB MOVEMENT DISORDER
  15. CALCIUM (UNSPECIFIED) [Concomitant]
     Active Substance: CALCIUM
     Indication: OSTEOPENIA
  16. CALCIUM (UNSPECIFIED) (+) VITAMIN D (UNSPECIFIED) [Concomitant]
     Active Substance: CALCIUM CARBONATE\VITAMIN D
     Indication: OSTEOPENIA
  17. BONIVA [Concomitant]
     Active Substance: IBANDRONATE SODIUM
     Indication: OSTEOPOROSIS
  18. MIACALCIN [Concomitant]
     Active Substance: CALCITONIN SALMON
     Indication: OSTEOPOROSIS
     Route: 065
  19. VITAMIN D [Concomitant]
     Active Substance: CHOLECALCIFEROL
     Indication: OSTEOPOROSIS
     Dosage: 800 IU, QD
     Route: 065

REACTIONS (51)
  - Low turnover osteopathy [Not Recovered/Not Resolved]
  - Stress fracture [Not Recovered/Not Resolved]
  - Joint arthroplasty [Unknown]
  - Hip arthroplasty [Unknown]
  - Hypotension [Unknown]
  - Muscle twitching [Unknown]
  - Flushing [Unknown]
  - Electrocardiogram abnormal [Unknown]
  - Gait disturbance [Unknown]
  - Hypercholesterolaemia [Unknown]
  - Vitreous disorder [Recovered/Resolved]
  - Macular pseudohole [Recovering/Resolving]
  - Cerebrovascular disorder [Unknown]
  - Surgery [Unknown]
  - Femur fracture [Not Recovered/Not Resolved]
  - Osteoporosis [Not Recovered/Not Resolved]
  - Vitrectomy [Unknown]
  - Device loosening [Unknown]
  - Holmes-Adie pupil [Unknown]
  - Viral infection [Unknown]
  - Tremor [Unknown]
  - Feeling jittery [Unknown]
  - Drug ineffective [Unknown]
  - Spinal laminectomy [Unknown]
  - Animal bite [Unknown]
  - Blood pressure increased [Unknown]
  - Intervertebral disc protrusion [Unknown]
  - Surgery [Unknown]
  - Device dislocation [Not Recovered/Not Resolved]
  - Carpal tunnel syndrome [Unknown]
  - Femur fracture [Unknown]
  - Blindness [Unknown]
  - Intervertebral disc operation [Unknown]
  - Device failure [Unknown]
  - Macular cyst [Recovering/Resolving]
  - Back pain [Unknown]
  - Pain in extremity [Unknown]
  - Poor quality sleep [Unknown]
  - Amnesia [Unknown]
  - Transient ischaemic attack [Unknown]
  - Lumbar spinal stenosis [Unknown]
  - Malaise [Unknown]
  - Femur fracture [Unknown]
  - Hip arthroplasty [Unknown]
  - Maculopathy [Unknown]
  - Hypothyroidism [Unknown]
  - Macular hole [Recovering/Resolving]
  - Depression [Unknown]
  - Anxiety [Unknown]
  - Nuclear magnetic resonance imaging brain abnormal [Unknown]
  - Pain in extremity [Unknown]

NARRATIVE: CASE EVENT DATE: 200211
